FAERS Safety Report 8084374-9 (Version None)
Quarter: 2012Q1

REPORT INFORMATION
  Report Type: 
  Country: None (occurrence: None)
  Receive Date: 20120128
  Receipt Date: 20110208
  Transmission Date: 20120608
  Serious: No
  Sender: FDA-Public Use
  Company Number: US-ABBOTT-11P-163-0703671-00

PATIENT
  Age: 26 Year
  Sex: Male

DRUGS (5)
  1. HUMIRA [Suspect]
     Indication: JUVENILE ARTHRITIS
     Dates: start: 20101108, end: 20110123
  2. PREDNISONE TAB [Concomitant]
     Dosage: WHEN HE STARTED HUMIRA
  3. PREDNISONE TAB [Concomitant]
     Indication: INFLAMMATION
  4. METHOTREXATE [Concomitant]
     Indication: PRODUCT USED FOR UNKNOWN INDICATION
  5. PLAQUENIL [Concomitant]
     Indication: PRODUCT USED FOR UNKNOWN INDICATION

REACTIONS (4)
  - PAPULE [None]
  - RASH [None]
  - UNDERSENSING [None]
  - PRURITUS [None]
